FAERS Safety Report 11716990 (Version 2)
Quarter: 2015Q4

REPORT INFORMATION
  Report Type: Spontaneous
  Country: US (occurrence: US)
  Receive Date: 20151104
  Receipt Date: 20151120
  Transmission Date: 20160304
  Serious: No
  Sender: FDA-Public Use
  Company Number: US-ELI_LILLY_AND_COMPANY-US201106003282

PATIENT
  Sex: Female

DRUGS (2)
  1. NIACIN. [Concomitant]
     Active Substance: NIACIN
  2. FORTEO [Suspect]
     Active Substance: TERIPARATIDE
     Indication: OSTEOPOROSIS
     Dosage: 20 UG, QD
     Dates: start: 201102

REACTIONS (3)
  - Intentional product misuse [Unknown]
  - Blood parathyroid hormone increased [Not Recovered/Not Resolved]
  - Blood parathyroid hormone decreased [Unknown]
